FAERS Safety Report 8765513 (Version 1)
Quarter: 2012Q4

REPORT INFORMATION
  Report Type: 
  Country: US (occurrence: US)
  Receive Date: 20120903
  Receipt Date: 20120903
  Transmission Date: 20130627
  Serious: Yes (Hospitalization)
  Sender: FDA-Public Use
  Company Number: US-AMGEN-USASP2012053425

PATIENT

DRUGS (1)
  1. EPOGEN [Suspect]
     Indication: ANAEMIA
     Dosage: 4000 IU, q2wk

REACTIONS (2)
  - Epistaxis [Recovered/Resolved]
  - Haemoglobin increased [Not Recovered/Not Resolved]
